FAERS Safety Report 21077319 (Version 2)
Quarter: 2022Q3

REPORT INFORMATION
  Report Type: Report from Study
  Country: IT (occurrence: IT)
  Receive Date: 20220713
  Receipt Date: 20220905
  Transmission Date: 20221027
  Serious: Yes (Death, Other)
  Sender: FDA-Public Use
  Company Number: IT-MINISAL02-645829

PATIENT
  Age: 86 Year
  Sex: Male
  Weight: 55 kg

DRUGS (12)
  1. VIDAZA [Suspect]
     Active Substance: AZACITIDINE
     Indication: Acute myeloid leukaemia
     Dosage: 75MG PER SQUARE METER OF BODY-SURFACE AREA FROM DAY 1-7 OF 28 DAYS CYCLE.
     Route: 058
     Dates: start: 20200817, end: 20200821
  2. VIDAZA [Suspect]
     Active Substance: AZACITIDINE
     Dosage: FREQUENCY TEXT: CYCLICAL?DECREASED DOSE
     Route: 058
     Dates: start: 202008, end: 20200821
  3. VENETOCLAX [Suspect]
     Active Substance: VENETOCLAX
     Indication: Acute myeloid leukaemia
     Dosage: FREQUENCY TEXT: CYCLICAL?75 MILLIGRAM/SQ. METER
     Route: 048
     Dates: start: 20200817, end: 20200829
  4. VENETOCLAX [Suspect]
     Active Substance: VENETOCLAX
     Dosage: FREQUENCY TEXT: CYCLICAL
     Route: 048
     Dates: start: 202008, end: 20200829
  5. VENETOCLAX [Suspect]
     Active Substance: VENETOCLAX
     Route: 048
  6. VENETOCLAX [Suspect]
     Active Substance: VENETOCLAX
     Dosage: 200 MILLIGRAM, QD ON DAY 2
     Route: 048
  7. VENETOCLAX [Suspect]
     Active Substance: VENETOCLAX
     Dosage: 100 MG ON DAY 1, 200 MG ON DAY 2 AND FROM DAY 3 ON THE TARGET DOSE OF 400 MG
     Route: 048
  8. FLUCONAZOLE [Concomitant]
     Active Substance: FLUCONAZOLE
     Indication: Antifungal prophylaxis
     Dosage: FREQUENCY TEXT: NOT PROVIDED
     Route: 065
  9. FLUCONAZOLE [Concomitant]
     Active Substance: FLUCONAZOLE
     Dosage: 1200 MILLIGRAM, QD
     Route: 065
  10. POSACONAZOLE [Concomitant]
     Active Substance: POSACONAZOLE
     Indication: Product used for unknown indication
     Dosage: FREQUENCY TEXT: NOT PROVIDED
     Route: 065
  11. POSACONAZOLE [Concomitant]
     Active Substance: POSACONAZOLE
     Dosage: 1200 MILLIGRAM, QD
     Route: 065
  12. DECITABINE [Concomitant]
     Active Substance: DECITABINE
     Indication: Product used for unknown indication
     Dosage: FREQUENCY TEXT: DAYS 1 THROUGH 5
     Route: 042

REACTIONS (2)
  - Neutropenia [Fatal]
  - Febrile neutropenia [Fatal]

NARRATIVE: CASE EVENT DATE: 20200817
